FAERS Safety Report 6161453-4 (Version None)
Quarter: 2009Q2

REPORT INFORMATION
  Report Type: 
  Country: None (occurrence: None)
  Receive Date: 20090417
  Receipt Date: 20090417
  Transmission Date: 20091009
  Serious: Yes (Other)
  Sender: FDA-Public Use
  Company Number: None

PATIENT
  Sex: Male
  Weight: 68.0396 kg

DRUGS (2)
  1. CYANOCOBALAMIN [Suspect]
     Indication: CROHN'S DISEASE
     Dosage: /ML EVERY 3 WEEKS  (DURATION: SINCE 1981)
  2. CYANOCOBALAMIN [Suspect]
     Indication: INTESTINAL RESECTION
     Dosage: /ML EVERY 3 WEEKS  (DURATION: SINCE 1981)

REACTIONS (4)
  - BLISTER [None]
  - RASH [None]
  - SCAR [None]
  - SKIN DISORDER [None]
